FAERS Safety Report 20045759 (Version 2)
Quarter: 2021Q4

REPORT INFORMATION
  Report Type: Spontaneous
  Country: CO (occurrence: CO)
  Receive Date: 20211108
  Receipt Date: 20211215
  Transmission Date: 20220303
  Serious: Yes (Other)
  Sender: FDA-Public Use
  Company Number: CO-PFIZER INC-202101450233

PATIENT
  Age: 59 Year
  Sex: Male

DRUGS (2)
  1. FRAGMIN [Suspect]
     Active Substance: DALTEPARIN SODIUM
     Dosage: 15000 IU, DAILY (7500 IU IN THE MORNING AND 7500 IU AT NIGHT)
  2. FRAGMIN [Suspect]
     Active Substance: DALTEPARIN SODIUM
     Dosage: 15000 IU, 2X/DAY (15000 IU IN THE MORNING AND 15000 IU AT NIGHT)

REACTIONS (3)
  - Thrombosis [Unknown]
  - Weight decreased [Unknown]
  - Overdose [Unknown]
